FAERS Safety Report 4369962-5 (Version None)
Quarter: 2004Q2

REPORT INFORMATION
  Report Type: 
  Country: None (occurrence: None)
  Receive Date: 20040527
  Receipt Date: 20040517
  Transmission Date: 20050107
  Serious: Yes (Death)
  Sender: FDA-Public Use
  Company Number: 2003AP02855

PATIENT
  Age: 78 Year
  Sex: Male

DRUGS (16)
  1. IRESSA [Suspect]
     Indication: LUNG ADENOCARCINOMA
     Dosage: 250 MG DAILY PO
     Route: 048
     Dates: start: 20030710, end: 20030730
  2. IRESSA [Suspect]
     Indication: NON-SMALL CELL LUNG CANCER
     Dosage: 250 MG DAILY PO
     Route: 048
     Dates: start: 20030710, end: 20030730
  3. IRESSA [Suspect]
     Indication: LUNG ADENOCARCINOMA
     Dosage: 250 MG DAILY PO
     Route: 048
     Dates: start: 20030807, end: 20030817
  4. IRESSA [Suspect]
     Indication: NON-SMALL CELL LUNG CANCER
     Dosage: 250 MG DAILY PO
     Route: 048
     Dates: start: 20030807, end: 20030817
  5. GASMOTIN [Concomitant]
  6. PROMAC [Concomitant]
  7. DASEN [Concomitant]
  8. MUCODYNE [Concomitant]
  9. DIPYRIDAMOLE [Concomitant]
  10. DIPRIVAN [Concomitant]
  11. SEVOFLURANE [Concomitant]
  12. VANCOMYCIN [Concomitant]
  13. RANTUDIL [Concomitant]
  14. GASTER [Concomitant]
  15. SELBEX [Concomitant]
  16. RADIATION THERAPY [Concomitant]

REACTIONS (2)
  - HEPATIC FUNCTION ABNORMAL [None]
  - LUNG INFECTION PSEUDOMONAL [None]
